FAERS Safety Report 7626635-0 (Version None)
Quarter: 2011Q3

REPORT INFORMATION
  Report Type: 
  Country: None (occurrence: None)
  Receive Date: 20110721
  Receipt Date: 20110519
  Transmission Date: 20111222
  Serious: No
  Sender: FDA-Public Use
  Company Number: US-NOVEN-11US002478

PATIENT
  Sex: Male

DRUGS (2)
  1. GABAPENTIN [Concomitant]
     Indication: PAIN
  2. FENTANYL [Suspect]
     Indication: PAIN
     Dosage: 100 UG, Q 3DAYS
     Route: 062

REACTIONS (4)
  - PRODUCT QUALITY ISSUE [None]
  - APPLICATION SITE VESICLES [None]
  - APPLICATION SITE PRURITUS [None]
  - APPLICATION SITE DERMATITIS [None]
